FAERS Safety Report 9476049 (Version 2)
Quarter: 2013Q4

REPORT INFORMATION
  Report Type: Spontaneous
  Country: IT (occurrence: IT)
  Receive Date: 20130826
  Receipt Date: 20131011
  Transmission Date: 20140711
  Serious: Yes (Other)
  Sender: FDA-Public Use
  Company Number: IT-BAYER-2013-101460

PATIENT
  Age: 1 Year
  Sex: Male

DRUGS (1)
  1. HELIXATE NEXGEN [Suspect]
     Indication: FACTOR VIII DEFICIENCY
     Dosage: 500 IU, NA
     Route: 040
     Dates: start: 20060420, end: 20061009

REACTIONS (2)
  - Anti factor VIII antibody test [Recovering/Resolving]
  - Activated partial thromboplastin time prolonged [Recovering/Resolving]
